FAERS Safety Report 10412864 (Version 2)
Quarter: 2015Q2

REPORT INFORMATION
  Report Type: Spontaneous
  Country: US (occurrence: US)
  Receive Date: 20140827
  Receipt Date: 20150518
  Transmission Date: 20150821
  Serious: Yes (Death, Hospitalization)
  Sender: FDA-Public Use
  Company Number: US-ACTELION-A-NJ2014-104092

PATIENT
  Age: 47 Year
  Sex: Female

DRUGS (3)
  1. REVATIO [Concomitant]
     Active Substance: SILDENAFIL CITRATE
  2. OPSUMIT [Suspect]
     Active Substance: MACITENTAN
     Indication: PULMONARY ARTERIAL HYPERTENSION
     Dosage: 10 MG, QD
     Route: 048
     Dates: start: 20140106, end: 20140816
  3. VELETRI [Suspect]
     Active Substance: EPOPROSTENOL
     Indication: PULMONARY ARTERIAL HYPERTENSION
     Dosage: 31 NG/KG, PER MIN
     Route: 042
     Dates: start: 20140131, end: 20140816

REACTIONS (10)
  - Septic shock [Fatal]
  - Urosepsis [Fatal]
  - Nausea [Unknown]
  - Culture urine positive [Fatal]
  - Chills [Unknown]
  - Pulmonary hypertension [Unknown]
  - Device issue [Unknown]
  - Blood culture negative [Unknown]
  - Device related infection [Unknown]
  - Malaise [Unknown]

NARRATIVE: CASE EVENT DATE: 20140816
